FAERS Safety Report 9382992 (Version 2)
Quarter: 2013Q3

REPORT INFORMATION
  Report Type: Spontaneous
  Country: GB (occurrence: GB)
  Receive Date: 20130703
  Receipt Date: 20130718
  Transmission Date: 20140515
  Serious: Yes (Hospitalization, Other)
  Sender: FDA-Public Use
  Company Number: GB-B.I. PHARMACEUTICALS,INC./RIDGEFIELD-2013-UK-01332UK

PATIENT
  Age: 83 Year
  Sex: Male

DRUGS (3)
  1. PRADAXA [Suspect]
     Indication: CEREBROVASCULAR ACCIDENT PROPHYLAXIS
     Dosage: 110 MG
     Route: 048
     Dates: start: 20121229, end: 20130516
  2. OMEPRAZOLE [Concomitant]
     Dosage: 40 MG
     Route: 048
  3. FERROUS FUMARATE [Concomitant]
     Dosage: 420 MG
     Route: 048

REACTIONS (2)
  - Ischaemic stroke [Not Recovered/Not Resolved]
  - Incorrect dose administered [Unknown]
